FAERS Safety Report 8935607 (Version 1)
Quarter: 2012Q4

REPORT INFORMATION
  Report Type: 
  Country: MX (occurrence: MX)
  Receive Date: 20121130
  Receipt Date: 20121130
  Transmission Date: 20130627
  Serious: Yes (Other)
  Sender: FDA-Public Use
  Company Number: PHHY2012MX109838

PATIENT
  Age: 73 Year
  Sex: Female

DRUGS (9)
  1. ACLASTA [Suspect]
     Indication: OSTEOPOROSIS
     Dosage: 5 mg/100ml
     Route: 042
     Dates: start: 20080822
  2. LOGIMAX [Concomitant]
     Indication: HYPERTENSION
     Dosage: 1 DF, UNK
     Dates: start: 2008
  3. DOCOSAHEXAENOIC ACID [Concomitant]
     Dosage: 1 DF, UNK
     Dates: start: 2010
  4. EICOSAPENTAENOIC ACID [Concomitant]
     Dosage: 1 DF, UNK
     Dates: start: 2010
  5. L ARGININ [Concomitant]
     Dosage: 1 DF, UNK
     Dates: start: 2010
  6. VITAMIIN C [Concomitant]
     Dosage: 1 DF, UNK
     Dates: start: 2010
  7. VITAMIN E [Concomitant]
     Dosage: 1 DF, UNK
     Dates: start: 2010
  8. SENTREPID [Concomitant]
     Indication: BLOOD CHOLESTEROL
     Dosage: 1 DF, UNK
     Dates: start: 2008
  9. POSTUREBEL [Concomitant]
     Indication: OSTEOPOROSIS
     Dosage: 1 DF, UNK
     Dates: start: 2008

REACTIONS (3)
  - Fall [Not Recovered/Not Resolved]
  - Wrist fracture [Not Recovered/Not Resolved]
  - Arthralgia [Not Recovered/Not Resolved]
